FAERS Safety Report 19466884 (Version 4)
Quarter: 2022Q2

REPORT INFORMATION
  Report Type: Spontaneous
  Country: US (occurrence: US)
  Receive Date: 20210628
  Receipt Date: 20220405
  Transmission Date: 20220721
  Serious: Yes (Other)
  Sender: FDA-Public Use
  Company Number: US-CELLTRION INC.-2021US008528

PATIENT

DRUGS (1)
  1. INFLECTRA [Suspect]
     Active Substance: INFLIXIMAB-DYYB
     Indication: Colitis ulcerative
     Dosage: 10 MG/KG
     Route: 065

REACTIONS (5)
  - Rectal haemorrhage [Unknown]
  - Intentional dose omission [Unknown]
  - Product dispensing error [Unknown]
  - Treatment delayed [Unknown]
  - Prescribed overdose [Unknown]
